FAERS Safety Report 23272569 (Version 1)
Quarter: 2023Q4

REPORT INFORMATION
  Report Type: Spontaneous
  Country: ES (occurrence: None)
  Receive Date: 20231207
  Receipt Date: 20231207
  Transmission Date: 20240110
  Serious: Yes (Other)
  Sender: FDA-Public Use
  Company Number: 2023A270808

PATIENT
  Age: 44 Year
  Sex: Female

DRUGS (20)
  1. FULVESTRANT [Suspect]
     Active Substance: FULVESTRANT
     Indication: Tumour invasion
     Dosage: UNK, (START DATE: APR-2023), EVEROLIMUS (NON-MUTATED PI3K)
     Dates: start: 202304
  2. FULVESTRANT [Suspect]
     Active Substance: FULVESTRANT
     Indication: Invasive ductal breast carcinoma
     Dosage: UNK, (START DATE: APR-2023), EVEROLIMUS (NON-MUTATED PI3K)
     Dates: start: 202304
  3. TAMOXIFEN [Suspect]
     Active Substance: TAMOXIFEN
     Indication: Invasive ductal breast carcinoma
     Dosage: UNK, X 7.5 YEARS, 1ST QT CYCLE, ENDS IN DEC-2016
  4. TAMOXIFEN [Suspect]
     Active Substance: TAMOXIFEN
     Indication: Adjuvant therapy
     Dosage: UNK, X 7.5 YEARS, 1ST QT CYCLE, ENDS IN DEC-2016
  5. TAMOXIFEN [Suspect]
     Active Substance: TAMOXIFEN
     Indication: Tumour invasion
     Dosage: UNK, X 7.5 YEARS, 1ST QT CYCLE, ENDS IN DEC-2016
  6. TAMOXIFEN [Suspect]
     Active Substance: TAMOXIFEN
     Indication: Chemotherapy
     Dosage: UNK, X 7.5 YEARS, 1ST QT CYCLE, ENDS IN DEC-2016
  7. CYCLOPHOSPHAMIDE [Suspect]
     Active Substance: CYCLOPHOSPHAMIDE
     Indication: Tumour invasion
     Dosage: UNK, AS A PART OF FEC REGIMEN X 6 CYCLES, FIRST CYCLE IN DEC-2008 AND LAST IN APR-2009
  8. CYCLOPHOSPHAMIDE [Suspect]
     Active Substance: CYCLOPHOSPHAMIDE
     Indication: Chemotherapy
     Dosage: UNK, AS A PART OF FEC REGIMEN X 6 CYCLES, FIRST CYCLE IN DEC-2008 AND LAST IN APR-2009
  9. CYCLOPHOSPHAMIDE [Suspect]
     Active Substance: CYCLOPHOSPHAMIDE
     Indication: Adjuvant therapy
     Dosage: UNK, AS A PART OF FEC REGIMEN X 6 CYCLES, FIRST CYCLE IN DEC-2008 AND LAST IN APR-2009
  10. CYCLOPHOSPHAMIDE [Suspect]
     Active Substance: CYCLOPHOSPHAMIDE
     Indication: Invasive ductal breast carcinoma
     Dosage: UNK, AS A PART OF FEC REGIMEN X 6 CYCLES, FIRST CYCLE IN DEC-2008 AND LAST IN APR-2009
  11. FLUOROURACIL [Suspect]
     Active Substance: FLUOROURACIL
     Indication: Tumour invasion
     Dosage: UNK, AS A PART OF FEC REGIMEN X 6 CYCLES, FIRST CYCLE IN DEC-2008 AND LAST IN APR-2009
  12. FLUOROURACIL [Suspect]
     Active Substance: FLUOROURACIL
     Indication: Chemotherapy
     Dosage: UNK, AS A PART OF FEC REGIMEN X 6 CYCLES, FIRST CYCLE IN DEC-2008 AND LAST IN APR-2009
  13. FLUOROURACIL [Suspect]
     Active Substance: FLUOROURACIL
     Indication: Invasive ductal breast carcinoma
     Dosage: UNK, AS A PART OF FEC REGIMEN X 6 CYCLES, FIRST CYCLE IN DEC-2008 AND LAST IN APR-2009
  14. FLUOROURACIL [Suspect]
     Active Substance: FLUOROURACIL
     Indication: Adjuvant therapy
     Dosage: UNK, AS A PART OF FEC REGIMEN X 6 CYCLES, FIRST CYCLE IN DEC-2008 AND LAST IN APR-2009
  15. PALBOCICLIB [Suspect]
     Active Substance: PALBOCICLIB
     Indication: Invasive ductal breast carcinoma
     Dosage: UNK, (START DATE: JAN-2019)
  16. LETROZOLE [Suspect]
     Active Substance: LETROZOLE
     Indication: Tumour invasion
     Dosage: UNK, (START DATE: JAN-2019)
  17. EPIRUBICIN [Suspect]
     Active Substance: EPIRUBICIN
     Indication: Adjuvant therapy
     Dosage: UNK, AS A PART OF FEC REGIMEN X 6 CYCLES, FIRST CYCLE IN DEC-2008 AND LAST IN APR-2009
  18. EPIRUBICIN [Suspect]
     Active Substance: EPIRUBICIN
     Indication: Tumour invasion
     Dosage: UNK, AS A PART OF FEC REGIMEN X 6 CYCLES, FIRST CYCLE IN DEC-2008 AND LAST IN APR-2009
  19. EPIRUBICIN [Suspect]
     Active Substance: EPIRUBICIN
     Indication: Invasive ductal breast carcinoma
     Dosage: UNK, AS A PART OF FEC REGIMEN X 6 CYCLES, FIRST CYCLE IN DEC-2008 AND LAST IN APR-2009
  20. EPIRUBICIN [Suspect]
     Active Substance: EPIRUBICIN
     Indication: Chemotherapy
     Dosage: UNK, AS A PART OF FEC REGIMEN X 6 CYCLES, FIRST CYCLE IN DEC-2008 AND LAST IN APR-2009

REACTIONS (13)
  - Metastases to bone [Unknown]
  - Neutropenia [Unknown]
  - Disease progression [Unknown]
  - Hepatic steatosis [Unknown]
  - Mucosal dryness [Unknown]
  - Hot flush [Unknown]
  - Mucosal inflammation [Unknown]
  - Osteolysis [Unknown]
  - Arthralgia [Unknown]
  - Asthenia [Unknown]
  - Pain [Unknown]
  - Amenorrhoea [Unknown]
  - Anaemia [Unknown]
